FAERS Safety Report 10178046 (Version 2)
Quarter: 2014Q2

REPORT INFORMATION
  Report Type: Spontaneous
  Country: US (occurrence: US)
  Receive Date: 20140518
  Receipt Date: 20140625
  Transmission Date: 20141212
  Serious: No
  Sender: FDA-Public Use
  Company Number: US-009507513-1405USA005461

PATIENT
  Age: 69 Year
  Sex: Female
  Weight: 64.4 kg

DRUGS (1)
  1. DULERA [Suspect]
     Indication: CHRONIC OBSTRUCTIVE PULMONARY DISEASE
     Dosage: 2 INHALATIONS TWICE A DAY, DOSAGE FORM METERED DOSE INHALERS (MDI)
     Route: 055
     Dates: start: 201403

REACTIONS (4)
  - Candida infection [Recovered/Resolved]
  - Drug dose omission [Unknown]
  - Product quality control issue [Unknown]
  - No adverse event [Unknown]
